FAERS Safety Report 6974632-0 (Version None)
Quarter: 2010Q3

REPORT INFORMATION
  Report Type: 
  Country: None (occurrence: None)
  Receive Date: 20100909
  Receipt Date: 20100909
  Transmission Date: 20110219
  Serious: Yes (Hospitalization)
  Sender: FDA-Public Use
  Company Number: None

PATIENT
  Age: 68 Year
  Sex: Male
  Weight: 78.9259 kg

DRUGS (3)
  1. CISPLATIN [Suspect]
     Indication: OESOPHAGEAL ADENOCARCINOMA
     Dosage: 80MG/M2 Q28D IV
     Route: 042
     Dates: start: 20100802, end: 20100830
  2. FLUOROURACIL [Suspect]
     Indication: OESOPHAGEAL ADENOCARCINOMA
     Dosage: 1000MG/M2/DAY Q28D, OVER 96 HRS IV
     Route: 042
     Dates: start: 20100802, end: 20100903
  3. PANITUMUMAB [Concomitant]

REACTIONS (4)
  - BLOOD CREATININE INCREASED [None]
  - DIARRHOEA [None]
  - NAUSEA [None]
  - VOMITING [None]
